FAERS Safety Report 20739507 (Version 4)
Quarter: 2022Q3

REPORT INFORMATION
  Report Type: Spontaneous
  Country: US (occurrence: US)
  Receive Date: 20220422
  Receipt Date: 20220711
  Transmission Date: 20221027
  Serious: Yes (Other)
  Sender: FDA-Public Use
  Company Number: US-PFIZER INC-202200575221

PATIENT
  Age: 57 Year
  Sex: Male

DRUGS (2)
  1. BENEFIX [Suspect]
     Active Substance: COAGULATION FACTOR IX RECOMBINANT HUMAN\ISOPROPYL ALCOHOL
     Indication: Factor IX deficiency
     Dosage: 60 IU/KG, 1X/DAY (FOR MILD/MODERATE BLEEDING)
  2. BENEFIX [Suspect]
     Active Substance: COAGULATION FACTOR IX RECOMBINANT HUMAN\ISOPROPYL ALCOHOL
     Dosage: 120 IU/KG, 1X/DAY (SEVERE BLEEDING)

REACTIONS (8)
  - Haemorrhage [Unknown]
  - Skeletal injury [Unknown]
  - Conjunctival haemorrhage [Unknown]
  - Haematoma [Unknown]
  - Arthralgia [Unknown]
  - Musculoskeletal disorder [Unknown]
  - Joint range of motion decreased [Unknown]
  - Wound [Unknown]
